FAERS Safety Report 12271695 (Version 1)
Quarter: 2016Q2

REPORT INFORMATION
  Report Type: Spontaneous
  Country: US (occurrence: None)
  Receive Date: 20160414
  Receipt Date: 20160414
  Transmission Date: 20160815
  Serious: No
  Sender: FDA-Public Use
  Company Number: None

PATIENT
  Age: 42 Year
  Sex: Female

DRUGS (7)
  1. RENA-VITE [Concomitant]
     Active Substance: ASCORBIC ACID\BIOTIN\CALCIUM PANTOTHENATE\CYANOCOBALAMIN\FOLIC ACID\NIACINAMIDE\PYRIDOXINE HYDROCHLORIDE\RIBOFLAVIN\THIAMINE MONONITRATE
  2. MYCOPHENOLATE 500MG TAB TEVA [Suspect]
     Active Substance: MYCOPHENOLATE MOFETIL
     Indication: ANAEMIA
     Route: 048
     Dates: start: 20160126, end: 201603
  3. NOXAFIL [Concomitant]
     Active Substance: POSACONAZOLE
  4. FOLIC ACID. [Concomitant]
     Active Substance: FOLIC ACID
  5. PROCRIT [Suspect]
     Active Substance: ERYTHROPOIETIN
     Indication: ANAEMIA
     Dosage: PROCRIT EVERY 10 DAYS SUBCUTANEOUSLY
     Route: 058
     Dates: start: 20160209
  6. IRON [Concomitant]
     Active Substance: IRON
  7. LANSOPRAZOLE. [Concomitant]
     Active Substance: LANSOPRAZOLE

REACTIONS (1)
  - Lung infection [None]

NARRATIVE: CASE EVENT DATE: 201603
